FAERS Safety Report 25191349 (Version 2)
Quarter: 2025Q2

REPORT INFORMATION
  Report Type: Spontaneous
  Country: US (occurrence: US)
  Receive Date: 20250411
  Receipt Date: 20250523
  Transmission Date: 20250717
  Serious: No
  Sender: MERCK SHARP & DOHME LLC
  Company Number: US-009507513-2269005

PATIENT
  Age: 84 Year
  Sex: Male

DRUGS (1)
  1. KEYTRUDA [Suspect]
     Active Substance: PEMBROLIZUMAB
     Indication: Angiosarcoma
     Route: 042
     Dates: start: 202502, end: 20250425

REACTIONS (3)
  - Muscular weakness [Recovering/Resolving]
  - Product use in unapproved indication [Unknown]
  - Hospice care [Unknown]

NARRATIVE: CASE EVENT DATE: 20250201
